FAERS Safety Report 8461993 (Version 2)
Quarter: 2012Q4

REPORT INFORMATION
  Report Type: 
  Country: CN (occurrence: CN)
  Receive Date: 20120315
  Receipt Date: 20121126
  Transmission Date: 20130627
  Serious: Yes (Other)
  Sender: FDA-Public Use
  Company Number: CN-ROCHE-1048767

PATIENT

DRUGS (4)
  1. CAPECITABINE [Suspect]
     Indication: RECTAL CANCER
     Route: 065
  2. OXALIPLATIN [Concomitant]
  3. CALCIUM FOLINATE [Concomitant]
  4. 5-FLUOROURACIL [Concomitant]

REACTIONS (6)
  - Rectal tenesmus [Unknown]
  - Radiation skin injury [Unknown]
  - Diarrhoea [Unknown]
  - Fatigue [Unknown]
  - Abdominal pain [Unknown]
  - White blood cell count decreased [Unknown]
